FAERS Safety Report 22019059 (Version 1)
Quarter: 2023Q1

REPORT INFORMATION
  Report Type: Spontaneous
  Country: US (occurrence: US)
  Receive Date: 20230222
  Receipt Date: 20230222
  Transmission Date: 20230418
  Serious: Yes (Death, Other)
  Sender: FDA-Public Use
  Company Number: US-AMGEN-USASP2023027648

PATIENT

DRUGS (4)
  1. CARFILZOMIB [Suspect]
     Active Substance: CARFILZOMIB
     Indication: Plasma cell myeloma refractory
     Dosage: 20/27 MG/M2 ON DAYS 1, 2, 8, 9, 15, 16 (CYCLES 1-8) AND DAYS 1, 2, 15, 16 FOR CYCLES, 2 TIMES/WK
     Route: 065
  2. POMALIDOMIDE [Suspect]
     Active Substance: POMALIDOMIDE
     Indication: Plasma cell myeloma refractory
     Dosage: 4 MILLIGRAM, ON DAYS 1-21
     Route: 048
  3. DEXAMETHASONE [Suspect]
     Active Substance: DEXAMETHASONE
     Indication: Plasma cell myeloma refractory
     Dosage: 40 MILLIGRAM, QWK, IN 28-DAY
     Route: 048
  4. DARATUMUMAB [Suspect]
     Active Substance: DARATUMUMAB
     Indication: Plasma cell myeloma refractory
     Dosage: UNK
     Route: 065

REACTIONS (47)
  - Toxicity to various agents [Unknown]
  - Anaemia [Unknown]
  - Neutropenia [Unknown]
  - Thrombocytopenia [Unknown]
  - Lymphopenia [Unknown]
  - Febrile neutropenia [Unknown]
  - Upper respiratory tract infection [Unknown]
  - COVID-19 [Unknown]
  - Bronchitis [Unknown]
  - Infection [Unknown]
  - Ejection fraction decreased [Unknown]
  - Supraventricular tachycardia [Unknown]
  - Cardiac disorder [Unknown]
  - Hypokalaemia [Unknown]
  - Hypophosphataemia [Unknown]
  - Hypercalcaemia [Unknown]
  - Hypocalcaemia [Unknown]
  - Hyponatraemia [Unknown]
  - Hyperkalaemia [Unknown]
  - Fatigue [Unknown]
  - Dyspnoea [Unknown]
  - Diarrhoea [Unknown]
  - Nausea [Unknown]
  - Hypertension [Unknown]
  - Neuropathy peripheral [Unknown]
  - Hyperglycaemia [Unknown]
  - Hepatic enzyme increased [Unknown]
  - Embolism [Unknown]
  - Acute kidney injury [Unknown]
  - Infusion related reaction [Unknown]
  - Haemolytic uraemic syndrome [Unknown]
  - Haemorrhage [Unknown]
  - Sinus bradycardia [Unknown]
  - Sinus tachycardia [Unknown]
  - Palpitations [Unknown]
  - Hypernatraemia [Unknown]
  - Rash [Unknown]
  - Coronary artery disease [Unknown]
  - Myocarditis [Unknown]
  - Pericarditis [Unknown]
  - Plasma cell myeloma [Unknown]
  - Pneumonia [Unknown]
  - Electrocardiogram QT prolonged [Unknown]
  - Death [Fatal]
  - Therapy partial responder [Unknown]
  - Treatment noncompliance [Unknown]
  - Off label use [Unknown]
